FAERS Safety Report 23956259 (Version 3)
Quarter: 2025Q2

REPORT INFORMATION
  Report Type: Spontaneous
  Country: US (occurrence: US)
  Receive Date: 20240610
  Receipt Date: 20250510
  Transmission Date: 20250716
  Serious: No
  Sender: SANOFI AVENTIS
  Company Number: US-SA-SAC20240606000457

PATIENT
  Age: 41 Year
  Sex: Male

DRUGS (2)
  1. DUPIXENT [Suspect]
     Active Substance: DUPILUMAB
     Indication: Eosinophilic oesophagitis
     Dosage: 300 MG, QW
     Route: 058
  2. DUPIXENT [Suspect]
     Active Substance: DUPILUMAB
     Dosage: 300 MG, QOW
     Route: 058

REACTIONS (9)
  - Flatulence [Unknown]
  - Panic attack [Unknown]
  - Chest discomfort [Unknown]
  - Dyspnoea [Unknown]
  - Erythema of eyelid [Recovered/Resolved]
  - Dry eye [Unknown]
  - Eye irritation [Unknown]
  - Eye pruritus [Recovered/Resolved]
  - Injection site reaction [Unknown]
